FAERS Safety Report 19207887 (Version 2)
Quarter: 2022Q2

REPORT INFORMATION
  Report Type: Spontaneous
  Country: US (occurrence: US)
  Receive Date: 20210503
  Receipt Date: 20220502
  Transmission Date: 20220721
  Serious: No
  Sender: FDA-Public Use
  Company Number: US-ABBVIE-21K-163-3880740-00

PATIENT
  Sex: Female

DRUGS (2)
  1. CREON [Suspect]
     Active Substance: PANCRELIPASE AMYLASE\PANCRELIPASE LIPASE\PANCRELIPASE PROTEASE
     Indication: Pancreatic failure
     Route: 048
  2. CREON [Suspect]
     Active Substance: PANCRELIPASE AMYLASE\PANCRELIPASE LIPASE\PANCRELIPASE PROTEASE
     Indication: Autoimmune disorder
     Route: 048

REACTIONS (7)
  - Dysphagia [Unknown]
  - Tracheal stenosis [Not Recovered/Not Resolved]
  - Weight decreased [Unknown]
  - Hypersensitivity [Unknown]
  - Abdominal distension [Unknown]
  - Throat tightness [Unknown]
  - Therapeutic product effect incomplete [Unknown]
